FAERS Safety Report 5194808-5 (Version None)
Quarter: 2006Q4

REPORT INFORMATION
  Report Type: 
  Country: None (occurrence: None)
  Receive Date: 20061229
  Receipt Date: 20061221
  Transmission Date: 20070319
  Serious: Yes (Other)
  Sender: FDA-Public Use
  Company Number: FR-ABBOTT-06P-056-0354149-00

PATIENT
  Age: 46 Year
  Sex: Male

DRUGS (3)
  1. DEPAKENE [Suspect]
     Indication: DRUG USE FOR UNKNOWN INDICATION
     Route: 048
     Dates: start: 19860101
  2. DEPAKENE [Suspect]
  3. DEPAKENE [Suspect]

REACTIONS (2)
  - DYSPEPSIA [None]
  - HAEMOPTYSIS [None]
